FAERS Safety Report 5238647-5 (Version None)
Quarter: 2007Q1

REPORT INFORMATION
  Report Type: 
  Country: None (occurrence: None)
  Receive Date: 20070214
  Receipt Date: 20070214
  Transmission Date: 20070707
  Serious: No
  Sender: FDA-Public Use
  Company Number: None

PATIENT
  Age: 54 Year
  Sex: Female
  Weight: 81.6 kg

DRUGS (3)
  1. ENALAPRIL MALEATE [Suspect]
     Indication: HYPERTENSION
     Dosage: UNKNOWN
  2. LOPRESSOR [Concomitant]
  3. WARFARIN SODIUM [Concomitant]

REACTIONS (5)
  - DYSPNOEA [None]
  - NECK PAIN [None]
  - ORAL DISCOMFORT [None]
  - PAIN [None]
  - SWELLING [None]
